FAERS Safety Report 8189742-2 (Version None)
Quarter: 2012Q1

REPORT INFORMATION
  Report Type: 
  Country: None (occurrence: None)
  Receive Date: 20120307
  Receipt Date: 20120229
  Transmission Date: 20120608
  Serious: No
  Sender: FDA-Public Use
  Company Number: US-PFIZER INC-2012055135

PATIENT
  Sex: Male

DRUGS (2)
  1. EPIRUBICIN HYDROCHLORIDE [Suspect]
     Indication: GASTROOESOPHAGEAL CANCER
     Dosage: CYCLIC
     Dates: start: 20120206
  2. ELOXATIN [Suspect]
     Indication: GASTROOESOPHAGEAL CANCER
     Dosage: 285 MG, EVERY CYCLE
     Route: 042
     Dates: start: 20120206, end: 20120206

REACTIONS (2)
  - PARAESTHESIA [None]
  - PAIN IN JAW [None]
